FAERS Safety Report 20887098 (Version 1)
Quarter: 2022Q2

REPORT INFORMATION
  Report Type: Spontaneous
  Country: US (occurrence: US)
  Receive Date: 20220528
  Receipt Date: 20220528
  Transmission Date: 20220721
  Serious: No
  Sender: FDA-Public Use
  Company Number: US-BRISTOL-MYERS SQUIBB COMPANY-2022-043495

PATIENT
  Age: 73 Year
  Sex: Male
  Weight: 111.58 kg

DRUGS (1)
  1. REVLIMID [Suspect]
     Active Substance: LENALIDOMIDE
     Indication: B-cell lymphoma unclassifiable
     Dosage: 1  WEEK OFF
     Route: 048
     Dates: start: 20220111, end: 20220426

REACTIONS (2)
  - White blood cell count decreased [Recovered/Resolved]
  - Intentional product use issue [Unknown]
